FAERS Safety Report 4647741-9 (Version None)
Quarter: 2005Q2

REPORT INFORMATION
  Report Type: 
  Country: None (occurrence: None)
  Receive Date: 20050427
  Receipt Date: 20050427
  Transmission Date: 20051028
  Serious: Yes (Hospitalization, Other)
  Sender: FDA-Public Use
  Company Number: None

PATIENT
  Sex: Female
  Weight: 60 kg

DRUGS (2)
  1. CYCLOPHOSPHAMIDE [Suspect]
     Dosage: 600 MG/M2 Q 14 DAYS FOR 6 CYCLES
     Dates: start: 20041208, end: 20041208
  2. DOXORUBICIN HCL [Suspect]
     Dosage: 60 MG/M2 Q 14 DAYS FOR 6 CYCLES
     Dates: start: 20041208, end: 20041208

REACTIONS (6)
  - ANAEMIA [None]
  - BACILLUS INFECTION [None]
  - BLOOD CULTURE POSITIVE [None]
  - LEUKOCYTOSIS [None]
  - NAUSEA [None]
  - VOMITING [None]
